FAERS Safety Report 19222543 (Version 1)
Quarter: 2021Q2

REPORT INFORMATION
  Report Type: Spontaneous
  Country: US (occurrence: US)
  Receive Date: 20210506
  Receipt Date: 20210506
  Transmission Date: 20210717
  Serious: Yes (Other)
  Sender: FDA-Public Use
  Company Number: None

PATIENT
  Age: 75 Year
  Sex: Male
  Weight: 91.1 kg

DRUGS (22)
  1. ENOXAPARIN [Concomitant]
     Active Substance: ENOXAPARIN
     Dates: start: 20210423, end: 20210427
  2. INSULIN LISPRO [Concomitant]
     Active Substance: INSULIN LISPRO
     Dates: start: 20210417, end: 20210427
  3. METOPROLOL SUCCINATE. [Concomitant]
     Active Substance: METOPROLOL SUCCINATE
     Dates: start: 20210417, end: 20210427
  4. NOREPINEPHRINE DRIP [Concomitant]
     Dates: start: 20210427, end: 20210428
  5. FENTANYL DRIP [Concomitant]
     Dates: start: 20210428, end: 20210428
  6. DILTIAZEM ER [Concomitant]
     Active Substance: DILTIAZEM
     Dates: start: 20210416, end: 20210427
  7. REMDESIVIR. [Concomitant]
     Active Substance: REMDESIVIR
     Dates: start: 20210417, end: 20210421
  8. EPINEPHRINE DRIP [Concomitant]
     Dates: start: 20210428, end: 20210428
  9. VASOPRESSIN DRIP [Concomitant]
     Dates: start: 20210428, end: 20210428
  10. CEFEPIME [Concomitant]
     Active Substance: CEFEPIME HYDROCHLORIDE
     Dates: start: 20210417, end: 20210421
  11. ISOPHANE INSULIN [Concomitant]
     Active Substance: INSULIN NOS
     Dates: start: 20210417, end: 20210418
  12. FUROSEMIDE. [Concomitant]
     Active Substance: FUROSEMIDE
     Dates: start: 20210422, end: 20210425
  13. LISINOPRIL. [Concomitant]
     Active Substance: LISINOPRIL
     Dates: start: 20210416, end: 20210420
  14. WARFARIN [Concomitant]
     Active Substance: WARFARIN
     Dates: start: 20210416, end: 20210417
  15. SODIUM BICARB DRIP [Concomitant]
     Dates: start: 20210428, end: 20210428
  16. TOCILIZUMAB. [Suspect]
     Active Substance: TOCILIZUMAB
     Indication: COVID-19
     Dosage: ?          OTHER FREQUENCY:ONCE;?
     Route: 042
     Dates: start: 20210419, end: 20210419
  17. INSULIN GLARGINE [Concomitant]
     Active Substance: INSULIN GLARGINE
     Dates: start: 20210421, end: 20210427
  18. DEXAMETHASONE. [Suspect]
     Active Substance: DEXAMETHASONE
     Indication: COVID-19
     Route: 040
     Dates: start: 20210418, end: 20210427
  19. DOXYCYCLINE. [Concomitant]
     Active Substance: DOXYCYCLINE
     Dates: start: 20210417, end: 20210421
  20. PHENYLEPHRINE DRIP [Concomitant]
     Dates: start: 20210428, end: 20210428
  21. ATORVASTATIN [Concomitant]
     Active Substance: ATORVASTATIN
     Dates: start: 20210416, end: 20210427
  22. DOCUSATE [Concomitant]
     Active Substance: DOCUSATE
     Dates: start: 20210424, end: 20210427

REACTIONS (9)
  - Respiratory failure [None]
  - Urine output decreased [None]
  - General physical health deterioration [None]
  - Hypotension [None]
  - Hypothermia [None]
  - Lethargy [None]
  - Acute kidney injury [None]
  - Cryptococcosis [None]
  - Blood culture positive [None]

NARRATIVE: CASE EVENT DATE: 20210428
